FAERS Safety Report 20655049 (Version 1)
Quarter: 2022Q1

REPORT INFORMATION
  Report Type: Spontaneous
  Country: US (occurrence: None)
  Receive Date: 20220330
  Receipt Date: 20220330
  Transmission Date: 20220423
  Serious: No
  Sender: FDA-Public Use
  Company Number: None

PATIENT
  Sex: Female
  Weight: 73.1 kg

DRUGS (8)
  1. CYCLOPHOSPHAMIDE [Suspect]
     Active Substance: CYCLOPHOSPHAMIDE
     Dates: start: 20220224, end: 20220314
  2. CYTARABINE [Suspect]
     Active Substance: CYTARABINE
     Dates: start: 20220224, end: 20220311
  3. DOXORUBICIN HYDROCHLORIDE [Suspect]
     Active Substance: DOXORUBICIN HYDROCHLORIDE
     Dates: start: 20220224, end: 20220314
  4. METHOTREXATE [Suspect]
     Active Substance: METHOTREXATE
     Dates: start: 20220224, end: 20220318
  5. SPRYCEL [Suspect]
     Active Substance: DASATINIB
     Dates: start: 20220224, end: 20220318
  6. DEXAMETHASONE [Suspect]
     Active Substance: DEXAMETHASONE
     Dates: start: 20220224, end: 20220314
  7. MESNA [Suspect]
     Active Substance: MESNA
     Dates: start: 20220224, end: 20220313
  8. VINCRISTINE SULFATE [Suspect]
     Active Substance: VINCRISTINE SULFATE
     Dates: start: 20220224, end: 20220314

REACTIONS (4)
  - Febrile neutropenia [None]
  - Diarrhoea [None]
  - Protein urine [None]
  - Bacterial test [None]

NARRATIVE: CASE EVENT DATE: 20220319
